FAERS Safety Report 17375771 (Version 3)
Quarter: 2022Q1

REPORT INFORMATION
  Report Type: Spontaneous
  Country: JP (occurrence: JP)
  Receive Date: 20200206
  Receipt Date: 20220309
  Transmission Date: 20220423
  Serious: Yes (Other)
  Sender: FDA-Public Use
  Company Number: JP-SUN PHARMACEUTICAL INDUSTRIES LTD-2019R1-230949

PATIENT
  Age: 63 Year
  Sex: Male

DRUGS (1)
  1. FINGOLIMOD [Suspect]
     Active Substance: FINGOLIMOD
     Indication: Multiple sclerosis
     Dosage: UNK
     Route: 065

REACTIONS (1)
  - Peripheral T-cell lymphoma unspecified [Unknown]
